FAERS Safety Report 6734019-2 (Version None)
Quarter: 2010Q2

REPORT INFORMATION
  Report Type: 
  Country: None (occurrence: None)
  Receive Date: 20100518
  Receipt Date: 20100504
  Transmission Date: 20101027
  Serious: Yes (Other)
  Sender: FDA-Public Use
  Company Number: 7004083

PATIENT
  Sex: Female

DRUGS (5)
  1. REBIF [Suspect]
     Indication: MULTIPLE SCLEROSIS
     Dosage: 8.8 MCG, SUBCUTANEOUS; 22 MCG, SUBCUTANEOUS; 44 MCG, 3 IN 1 WK, SUBCUTANEOUS
     Route: 058
     Dates: start: 20100201, end: 20100101
  2. REBIF [Suspect]
     Indication: MULTIPLE SCLEROSIS
     Dosage: 8.8 MCG, SUBCUTANEOUS; 22 MCG, SUBCUTANEOUS; 44 MCG, 3 IN 1 WK, SUBCUTANEOUS
     Route: 058
     Dates: start: 20100101, end: 20100301
  3. REBIF [Suspect]
     Indication: MULTIPLE SCLEROSIS
     Dosage: 8.8 MCG, SUBCUTANEOUS; 22 MCG, SUBCUTANEOUS; 44 MCG, 3 IN 1 WK, SUBCUTANEOUS
     Route: 058
     Dates: start: 20100301, end: 20100301
  4. PAXIL [Concomitant]
  5. AMBIEN [Concomitant]

REACTIONS (1)
  - AUTOIMMUNE HEPATITIS [None]
